FAERS Safety Report 24071546 (Version 1)
Quarter: 2024Q3

REPORT INFORMATION
  Report Type: Report from Study
  Country: PK (occurrence: PK)
  Receive Date: 20240710
  Receipt Date: 20240710
  Transmission Date: 20241017
  Serious: No
  Sender: ROCHE
  Company Number: PK-ROCHE-3567354

PATIENT
  Age: 11 Year
  Sex: Female
  Weight: 39.0 kg

DRUGS (1)
  1. EVRYSDI [Suspect]
     Active Substance: RISDIPLAM
     Indication: Spinal muscular atrophy
     Dosage: 5 MG OD X CONTINUE
     Route: 048
     Dates: start: 20240430

REACTIONS (3)
  - Muscular weakness [Unknown]
  - Gait disturbance [Unknown]
  - Spinal pain [Unknown]
